FAERS Safety Report 6802637-9 (Version None)
Quarter: 2010Q2

REPORT INFORMATION
  Report Type: 
  Country: None (occurrence: None)
  Receive Date: 20100628
  Receipt Date: 20100614
  Transmission Date: 20101027
  Serious: Yes (Other)
  Sender: FDA-Public Use
  Company Number: PHHY2010JP39179

PATIENT

DRUGS (1)
  1. DIOVAN HCT [Suspect]
     Indication: NEPHROSCLEROSIS
     Dosage: 1 DF, QD
     Route: 048
     Dates: start: 20100421

REACTIONS (1)
  - BLOOD CREATININE INCREASED [None]
